FAERS Safety Report 25440695 (Version 1)
Quarter: 2025Q2

REPORT INFORMATION
  Report Type: Spontaneous
  Country: CA (occurrence: CA)
  Receive Date: 20250616
  Receipt Date: 20250616
  Transmission Date: 20250716
  Serious: Yes (Other)
  Sender: PURDUE
  Company Number: CA-NAPPMUNDI-GBR-2025-0126330

PATIENT
  Age: 6 Year
  Sex: Male

DRUGS (1)
  1. METHYLPHENIDATE [Suspect]
     Active Substance: METHYLPHENIDATE
     Indication: Autism spectrum disorder
     Route: 065

REACTIONS (8)
  - Self-destructive behaviour [Unknown]
  - Aggression [Unknown]
  - Behaviour disorder [Unknown]
  - Sleep disorder [Unknown]
  - Food refusal [Unknown]
  - Agitation [Unknown]
  - Decreased appetite [Unknown]
  - Off label use [Unknown]
